FAERS Safety Report 6900459-1 (Version None)
Quarter: 2010Q3

REPORT INFORMATION
  Report Type: 
  Country: None (occurrence: None)
  Receive Date: 20100730
  Receipt Date: 20100720
  Transmission Date: 20110219
  Serious: Yes (Hospitalization)
  Sender: FDA-Public Use
  Company Number: 015714

PATIENT
  Sex: Male

DRUGS (7)
  1. CERTOLIZUMAB PEGOL (CERTOLIZUMAB PEGOL) [Suspect]
     Indication: RHEUMATOID ARTHRITIS
     Dosage: SUBCUTANEOUS
     Route: 058
     Dates: start: 20100304
  2. METHOTREXATE [Concomitant]
  3. LANSOPRAZOLE [Concomitant]
  4. AMLODIPINE BESYLATE [Concomitant]
  5. CANDESARTAN CILEXETIL [Concomitant]
  6. RISDRONATE SODIUM [Concomitant]
  7. MELOXICAM [Concomitant]

REACTIONS (6)
  - C-REACTIVE PROTEIN INCREASED [None]
  - COUGH [None]
  - DECREASED APPETITE [None]
  - IMMUNODEFICIENCY [None]
  - NASOPHARYNGITIS [None]
  - PYREXIA [None]
